FAERS Safety Report 22059744 (Version 1)
Quarter: 2023Q1

REPORT INFORMATION
  Report Type: Spontaneous
  Country: US (occurrence: US)
  Receive Date: 20230303
  Receipt Date: 20230303
  Transmission Date: 20230418
  Serious: No
  Sender: FDA-Public Use
  Company Number: US-SA-SAC20230302000592

PATIENT
  Age: 18 Year
  Sex: Female

DRUGS (3)
  1. DUPIXENT [Suspect]
     Active Substance: DUPILUMAB
     Indication: Dermatitis atopic
     Dosage: 300 MG, QOW
     Route: 058
     Dates: start: 20211221
  2. ELIDEL [Concomitant]
     Active Substance: PIMECROLIMUS
     Dosage: UNK
  3. LORATADINE [Concomitant]
     Active Substance: LORATADINE
     Dosage: UNK

REACTIONS (1)
  - Illness [Unknown]
